FAERS Safety Report 4594790-5 (Version None)
Quarter: 2005Q1

REPORT INFORMATION
  Report Type: 
  Country: None (occurrence: None)
  Receive Date: 20050223
  Receipt Date: 20050210
  Transmission Date: 20050727
  Serious: Yes (Hospitalization)
  Sender: FDA-Public Use
  Company Number: 2005UW02692

PATIENT
  Sex: Female

DRUGS (2)
  1. SEROQUEL [Suspect]
  2. XANAX [Suspect]
     Dosage: APPROXIMATELY 3 PILLS

REACTIONS (3)
  - ATTENTION-SEEKING BEHAVIOUR [None]
  - INTENTIONAL MISUSE [None]
  - SUICIDE ATTEMPT [None]
